FAERS Safety Report 5509674-5 (Version None)
Quarter: 2007Q4

REPORT INFORMATION
  Report Type: 
  Country: None (occurrence: None)
  Receive Date: 20071107
  Receipt Date: 20071107
  Transmission Date: 20080405
  Serious: Yes (Hospitalization)
  Sender: FDA-Public Use
  Company Number: None

PATIENT
  Age: 32 Year
  Sex: Male
  Weight: 73.9363 kg

DRUGS (4)
  1. IBUPROFEN [Suspect]
     Indication: ABDOMINAL PAIN
     Dosage: 600 MG DAILY PO
     Route: 048
     Dates: start: 20070316, end: 20070320
  2. SUCRALFATE [Concomitant]
  3. AMITRIPTYLINE HCL [Concomitant]
  4. DOXYCYCLINE [Concomitant]

REACTIONS (5)
  - CHEST PAIN [None]
  - EROSIVE OESOPHAGITIS [None]
  - FLATULENCE [None]
  - HAEMATEMESIS [None]
  - ORAL INTAKE REDUCED [None]
